FAERS Safety Report 5805989-1 (Version None)
Quarter: 2008Q3

REPORT INFORMATION
  Report Type: 
  Country: None (occurrence: None)
  Receive Date: 20080710
  Receipt Date: 20080702
  Transmission Date: 20090109
  Serious: Yes (Hospitalization)
  Sender: FDA-Public Use
  Company Number: B0520047A

PATIENT
  Age: 35 Year
  Sex: Female

DRUGS (1)
  1. SALMETEROL/FLUTICASONE PROPIONATE 50/250UG [Suspect]
     Indication: ASTHMA
     Route: 055
     Dates: start: 20080408, end: 20080503

REACTIONS (1)
  - ASTHMA [None]
